FAERS Safety Report 8813539 (Version 1)
Quarter: 2012Q4

REPORT INFORMATION
  Report Type: 
  Country: US (occurrence: US)
  Receive Date: 20120927
  Receipt Date: 20120927
  Transmission Date: 20130627
  Serious: No
  Sender: FDA-Public Use
  Company Number: US-AMGEN-USASP2012048421

PATIENT
  Sex: Female

DRUGS (5)
  1. PROLIA [Suspect]
     Indication: OSTEOPOROSIS POSTMENOPAUSAL
     Dosage: UNK
  2. METOPROLOL [Concomitant]
     Indication: TACHYCARDIA
     Dosage: 12.5 g, bid
  3. LEVOXYL [Concomitant]
     Indication: HYPOTHYROIDISM
     Dosage: 50 mg, qd
     Route: 048
  4. CALCIUM CARBONATE [Concomitant]
     Dosage: UNK UNK, bid
     Route: 048
  5. VITAMIN D3 [Concomitant]
     Dosage: 50000 UNK, UNK
     Route: 048

REACTIONS (1)
  - Vaginal haemorrhage [Recovered/Resolved]
